FAERS Safety Report 9648186 (Version 2)
Quarter: 2013Q4

REPORT INFORMATION
  Report Type: Spontaneous
  Country: US (occurrence: US)
  Receive Date: 20131028
  Receipt Date: 20131028
  Transmission Date: 20140711
  Serious: Yes (Other)
  Sender: FDA-Public Use
  Company Number: US-BAYER-2013-083971

PATIENT
  Age: 65 Year
  Sex: Male
  Weight: 79.38 kg

DRUGS (6)
  1. XARELTO [Suspect]
     Indication: HIP ARTHROPLASTY
     Dosage: 10 MG, QD
     Route: 048
  2. XARELTO [Interacting]
     Indication: DEEP VEIN THROMBOSIS
     Dosage: 10 MG, QD
     Route: 048
     Dates: start: 20130308
  3. XARELTO [Interacting]
     Indication: EMBOLISM VENOUS
  4. XARELTO [Interacting]
     Indication: THROMBOSIS PROPHYLAXIS
  5. ACETYLSALICYLIC ACID({=100 MG) [Interacting]
     Indication: PRODUCT USED FOR UNKNOWN INDICATION
     Dosage: 81 MG, UNK
     Route: 065
  6. CELEBREX [Concomitant]
     Route: 065

REACTIONS (1)
  - Haemorrhage [Unknown]
